FAERS Safety Report 23346795 (Version 2)
Quarter: 2024Q1

REPORT INFORMATION
  Report Type: Spontaneous
  Country: US (occurrence: US)
  Receive Date: 20231228
  Receipt Date: 20240219
  Transmission Date: 20240409
  Serious: No
  Sender: FDA-Public Use
  Company Number: US-SA-SAC20231227000071

PATIENT
  Age: 37 Year
  Sex: Male

DRUGS (2)
  1. DUPIXENT [Suspect]
     Active Substance: DUPILUMAB
     Indication: Chronic rhinosinusitis with nasal polyps
     Dosage: 300 MG, QOW
     Route: 058
  2. DUPIXENT [Suspect]
     Active Substance: DUPILUMAB
     Indication: Asthma
     Dosage: 300 MG, QOW
     Route: 058
     Dates: start: 20231022

REACTIONS (11)
  - Cough [Unknown]
  - Rhinitis allergic [Unknown]
  - Upper-airway cough syndrome [Unknown]
  - Feeling abnormal [Recovering/Resolving]
  - Inappropriate schedule of product administration [Recovering/Resolving]
  - Nasopharyngitis [Unknown]
  - Nasal polyps [Unknown]
  - Condition aggravated [Unknown]
  - Therapeutic response shortened [Unknown]
  - Accidental exposure to product [Unknown]
  - Exposure via skin contact [Unknown]
